FAERS Safety Report 23545092 (Version 1)
Quarter: 2024Q1

REPORT INFORMATION
  Report Type: Spontaneous
  Country: US (occurrence: US)
  Receive Date: 20240220
  Receipt Date: 20240220
  Transmission Date: 20240409
  Serious: No
  Sender: FDA-Public Use
  Company Number: US-PFIZER INC-202400043922

PATIENT
  Sex: Male

DRUGS (4)
  1. BRAFTOVI [Suspect]
     Active Substance: ENCORAFENIB
     Indication: Metastatic malignant melanoma
     Dosage: UNK
  2. BRAFTOVI [Suspect]
     Active Substance: ENCORAFENIB
     Dosage: 1ST DOSE REDUCTION
  3. MEKTOVI [Suspect]
     Active Substance: BINIMETINIB
     Indication: Metastatic malignant melanoma
     Dosage: UNK
  4. MEKTOVI [Suspect]
     Active Substance: BINIMETINIB
     Dosage: 1ST DOSE REDUCTION

REACTIONS (1)
  - Myalgia [Recovered/Resolved]
